FAERS Safety Report 5761586-8 (Version None)
Quarter: 2008Q2

REPORT INFORMATION
  Report Type: 
  Country: None (occurrence: None)
  Receive Date: 20080606
  Receipt Date: 20080527
  Transmission Date: 20081010
  Serious: Yes (Hospitalization, Other)
  Sender: FDA-Public Use
  Company Number: FR-PFIZER INC-2008029901

PATIENT
  Sex: Female
  Weight: 62 kg

DRUGS (1)
  1. CHANTIX [Suspect]
     Indication: SMOKING CESSATION THERAPY

REACTIONS (3)
  - HAEMANGIOMA [None]
  - SUBCUTANEOUS ABSCESS [None]
  - TACHYCARDIA [None]
